FAERS Safety Report 4557606-9 (Version None)
Quarter: 2005Q1

REPORT INFORMATION
  Report Type: 
  Country: None (occurrence: None)
  Receive Date: 20050120
  Receipt Date: 20041112
  Transmission Date: 20050727
  Serious: Yes (Disabling, Other)
  Sender: FDA-Public Use
  Company Number: US-MERCK-0411USA02213

PATIENT
  Age: 49 Year
  Sex: Male
  Weight: 90 kg

DRUGS (1)
  1. VIOXX [Suspect]
     Route: 048
     Dates: start: 20020106

REACTIONS (10)
  - BLINDNESS [None]
  - BLINDNESS UNILATERAL [None]
  - BLOOD PRESSURE INCREASED [None]
  - DIVERTICULUM [None]
  - EYELID PTOSIS [None]
  - GLAUCOMA [None]
  - HAEMORRHOIDS [None]
  - INTRAOCULAR PRESSURE INCREASED [None]
  - MACULAR OEDEMA [None]
  - RETINAL VEIN OCCLUSION [None]
